FAERS Safety Report 9034157 (Version 1)
Quarter: 2013Q1

REPORT INFORMATION
  Report Type: Spontaneous
  Country: CA (occurrence: CA)
  Receive Date: 20130128
  Receipt Date: 20130128
  Transmission Date: 20140127
  Serious: Yes (Hospitalization)
  Sender: FDA-Public Use
  Company Number: CA-AMGEN-CANSP2012033894

PATIENT
  Age: 50 Year
  Sex: Male
  Weight: 54 kg

DRUGS (1)
  1. NPLATE [Suspect]
     Indication: IDIOPATHIC THROMBOCYTOPENIC PURPURA
     Dosage: 54.5 MUG, QWK
     Route: 058
     Dates: start: 20120510, end: 20120525

REACTIONS (1)
  - Therapeutic response decreased [Not Recovered/Not Resolved]
